FAERS Safety Report 8780176 (Version 1)
Quarter: 2012Q4

REPORT INFORMATION
  Report Type: Spontaneous
  Country: US (occurrence: None)
  Receive Date: 20120831
  Receipt Date: 20120831
  Transmission Date: 20130627
  Serious: Yes (Life-Threatening, Hospitalization)
  Sender: FDA-Public Use
  Company Number: None

PATIENT
  Age: 55 Year
  Sex: Male

DRUGS (1)
  1. ENALAPRIL [Suspect]
     Dosage: 1 pill per day
     Dates: start: 2002, end: 2012

REACTIONS (8)
  - Cough [None]
  - Pharyngeal oedema [None]
  - Snoring [None]
  - Fluid retention [None]
  - Joint swelling [None]
  - Joint swelling [None]
  - Swollen tongue [None]
  - Dyspnoea [None]
